FAERS Safety Report 5708283-2 (Version None)
Quarter: 2008Q2

REPORT INFORMATION
  Report Type: 
  Country: None (occurrence: None)
  Receive Date: 20080417
  Receipt Date: 20080409
  Transmission Date: 20081010
  Serious: Yes (Other)
  Sender: FDA-Public Use
  Company Number: ES-MERCK-0804ESP00027

PATIENT
  Age: 35 Year
  Sex: Female

DRUGS (6)
  1. CRIXIVAN [Suspect]
     Indication: HIV INFECTION
     Route: 065
     Dates: start: 19960101
  2. LAMIVUDINE [Concomitant]
     Indication: HIV INFECTION
     Route: 065
     Dates: start: 19960101
  3. STAVUDINE [Concomitant]
     Indication: HIV INFECTION
     Route: 065
     Dates: start: 19960101
  4. DIDANOSINE [Concomitant]
     Indication: HIV INFECTION
     Route: 065
     Dates: start: 19990101
  5. EFAVIRENZ [Concomitant]
     Indication: HIV INFECTION
     Route: 065
     Dates: start: 19990101
  6. NEVIRAPINE [Concomitant]
     Indication: HIV INFECTION
     Route: 065

REACTIONS (2)
  - ANGIOLIPOMA [None]
  - LIPODYSTROPHY ACQUIRED [None]
